FAERS Safety Report 6216975-4 (Version None)
Quarter: 2009Q2

REPORT INFORMATION
  Report Type: 
  Country: None (occurrence: None)
  Receive Date: 20090604
  Receipt Date: 20090601
  Transmission Date: 20091009
  Serious: Yes (Hospitalization)
  Sender: FDA-Public Use
  Company Number: 20096207

PATIENT
  Sex: Female

DRUGS (1)
  1. LIORESAL [Suspect]
     Indication: MUSCLE SPASTICITY
     Dosage: MCG, DAILY, INTRATHECAL
     Route: 037

REACTIONS (8)
  - DEVICE MALFUNCTION [None]
  - IRRITABILITY [None]
  - MUSCLE SPASTICITY [None]
  - MUSCULOSKELETAL STIFFNESS [None]
  - PRURITUS [None]
  - THERAPY REGIMEN CHANGED [None]
  - UNDERDOSE [None]
  - WITHDRAWAL SYNDROME [None]
